APPROVED DRUG PRODUCT: APRETUDE
Active Ingredient: CABOTEGRAVIR
Strength: 600MG/3ML (200MG/ML)
Dosage Form/Route: SUSPENSION, EXTENDED RELEASE;INTRAMUSCULAR
Application: N215499 | Product #001
Applicant: VIIV HEALTHCARE CO
Approved: Dec 20, 2021 | RLD: Yes | RS: Yes | Type: RX

PATENTS:
Patent 12138264 | Expires: Sep 15, 2031
Patent 10927129 | Expires: Apr 28, 2026
Patent 8410103 | Expires: Feb 4, 2031
Patent 11224597 | Expires: Sep 15, 2031

EXCLUSIVITY:
Code: NCE | Date: Jan 21, 2026